FAERS Safety Report 13645836 (Version 1)
Quarter: 2017Q2

REPORT INFORMATION
  Report Type: Report from Study
  Country: None (occurrence: US)
  Receive Date: 20170613
  Receipt Date: 20170613
  Transmission Date: 20170830
  Serious: Yes (Hospitalization, Other)
  Sender: FDA-Public Use
  Company Number: US-ABBVIE-17K-163-2000752-00

PATIENT
  Age: 53 Year
  Sex: Female
  Weight: 96.7 kg

DRUGS (1)
  1. HUMIRA [Suspect]
     Active Substance: ADALIMUMAB
     Indication: PSORIATIC ARTHROPATHY
     Route: 058
     Dates: start: 201609, end: 20170509

REACTIONS (6)
  - Asthma [Not Recovered/Not Resolved]
  - Pelvic fluid collection [Recovered/Resolved]
  - Abdominal pain lower [Recovered/Resolved]
  - Pelvic infection [Recovered/Resolved]
  - Infection [Recovered/Resolved]
  - Local swelling [Recovered/Resolved]

NARRATIVE: CASE EVENT DATE: 201612
